FAERS Safety Report 8775042 (Version 1)
Quarter: 2012Q4

REPORT INFORMATION
  Report Type: 
  Country: FR (occurrence: FR)
  Receive Date: 20120910
  Receipt Date: 20120910
  Transmission Date: 20130627
  Serious: Yes (Life-Threatening)
  Sender: FDA-Public Use
  Company Number: FR-GE HEALTHCARE MEDICAL DIAGNOSTICS-OMPQ-NO-1209S-0915

PATIENT
  Age: 71 Year
  Sex: Female

DRUGS (12)
  1. OMNIPAQUE [Suspect]
     Indication: ABDOMINAL PAIN
     Route: 042
     Dates: start: 20120814, end: 20120812
  2. CARDENSIEL [Concomitant]
  3. TRIATEC [Concomitant]
  4. LASILIX [Concomitant]
  5. TAHOR [Concomitant]
  6. KARDEGIC [Concomitant]
  7. SOLIAN [Concomitant]
  8. ATARAX [Concomitant]
  9. PIASCLEDINE [Concomitant]
  10. LEVOTHYROX [Concomitant]
  11. IMOVANE [Concomitant]
  12. CHEMOTHERAPY UNSPECIFIED [Concomitant]

REACTIONS (8)
  - Acute pulmonary oedema [Recovered/Resolved]
  - Dyspnoea [Recovered/Resolved]
  - Crepitations [Recovered/Resolved]
  - Productive cough [Recovered/Resolved]
  - Cardio-respiratory arrest [Recovered/Resolved]
  - Bradycardia [Recovered/Resolved]
  - Hypotension [Recovered/Resolved]
  - Atrial fibrillation [Recovered/Resolved]
